FAERS Safety Report 5527448-6 (Version None)
Quarter: 2007Q4

REPORT INFORMATION
  Report Type: 
  Country: None (occurrence: None)
  Receive Date: 20071123
  Receipt Date: 20071106
  Transmission Date: 20080405
  Serious: Yes (Life-Threatening, Hospitalization, Disabling)
  Sender: FDA-Public Use
  Company Number: SP01609

PATIENT
  Age: 60 Year
  Sex: Female
  Weight: 61 kg

DRUGS (14)
  1. OSMOPREP [Suspect]
     Indication: COLONOSCOPY
     Dosage: 48 GM, ORAL
     Route: 048
     Dates: start: 20070924, end: 20070925
  2. OSMOPREP [Suspect]
     Indication: COLONOSCOPY
     Dosage: 48 GM, ORAL
     Route: 048
     Dates: start: 20070925, end: 20070926
  3. LISINOPRIL [Concomitant]
  4. ASACOL [Concomitant]
  5. HYOSCYAMINE [Concomitant]
  6. EFFEXOR XR [Concomitant]
  7. TOPAMAX [Concomitant]
  8. SYNTHROID [Concomitant]
  9. OMEPRAZOLE [Concomitant]
  10. TRAZODONE HCL [Concomitant]
  11. TRAMADOL HCL [Concomitant]
  12. ATIVAN [Concomitant]
  13. FIORICET [Concomitant]
  14. MULTI-VITAMIN [Concomitant]

REACTIONS (11)
  - BLOOD POTASSIUM DECREASED [None]
  - DEHYDRATION [None]
  - EUPHORIC MOOD [None]
  - HEADACHE [None]
  - HYPERPHOSPHATAEMIA [None]
  - NAUSEA [None]
  - NEPHROPATHY [None]
  - OVERDOSE [None]
  - PARAESTHESIA [None]
  - RENAL FAILURE ACUTE [None]
  - VOMITING [None]
